FAERS Safety Report 9372999 (Version 2)
Quarter: 2013Q3

REPORT INFORMATION
  Report Type: Spontaneous
  Country: JP (occurrence: JP)
  Receive Date: 20130627
  Receipt Date: 20130710
  Transmission Date: 20140515
  Serious: Yes (Other)
  Sender: FDA-Public Use
  Company Number: JP-TEVA-414918ISR

PATIENT
  Age: 76 Year
  Sex: Male

DRUGS (11)
  1. ADEFURONIC [Suspect]
     Route: 048
     Dates: start: 20130617, end: 20130618
  2. FLOMOX [Concomitant]
  3. OPALMON [Concomitant]
  4. NEUROTROPIN [Concomitant]
  5. WARFARIN [Concomitant]
  6. LASIX [Concomitant]
  7. PARIET [Concomitant]
  8. SELARA [Concomitant]
  9. MICARDIS [Concomitant]
  10. URINORM [Concomitant]
  11. DIART [Concomitant]

REACTIONS (1)
  - Urinary retention [Unknown]
